FAERS Safety Report 10551155 (Version 1)
Quarter: 2014Q4

REPORT INFORMATION
  Report Type: Spontaneous
  Country: US (occurrence: None)
  Receive Date: 20141028
  Receipt Date: 20141028
  Transmission Date: 20150529
  Serious: Yes (Disabling)
  Sender: FDA-Public Use
  Company Number: None

PATIENT
  Age: 55 Year
  Sex: Female
  Weight: 58.97 kg

DRUGS (2)
  1. BUPROPION SR [Suspect]
     Active Substance: BUPROPION
     Indication: ANXIETY
     Dosage: 3 TABLETS?ONCE DAILY?TAKEN BY MOUTH
     Route: 048
     Dates: start: 20141001, end: 20141027
  2. BUPROPION SR [Suspect]
     Active Substance: BUPROPION
     Indication: MAJOR DEPRESSION
     Dosage: 3 TABLETS?ONCE DAILY?TAKEN BY MOUTH
     Route: 048
     Dates: start: 20141001, end: 20141027

REACTIONS (7)
  - Pain [None]
  - Anxiety [None]
  - Suicidal ideation [None]
  - Depression [None]
  - Condition aggravated [None]
  - Product substitution issue [None]
  - Migraine [None]

NARRATIVE: CASE EVENT DATE: 20141008
